FAERS Safety Report 5119242-5 (Version None)
Quarter: 2006Q4

REPORT INFORMATION
  Report Type: 
  Country: None (occurrence: None)
  Receive Date: 20061002
  Receipt Date: 20061002
  Transmission Date: 20070319
  Serious: No
  Sender: FDA-Public Use
  Company Number: None

PATIENT
  Age: 76 Year
  Sex: Male

DRUGS (2)
  1. SODIUM BICARBONATE IN PLASTIC CONTAINER [Suspect]
     Dosage: INJECTABLE
  2. SODIUM BICARBONATE IN PLASTIC CONTAINER [Suspect]

REACTIONS (6)
  - EXTRAVASATION [None]
  - INJECTION SITE DISCOLOURATION [None]
  - INJECTION SITE PAIN [None]
  - INJECTION SITE SWELLING [None]
  - MEDICATION ERROR [None]
  - WRONG TECHNIQUE IN DRUG USAGE PROCESS [None]
